FAERS Safety Report 6162815-1 (Version None)
Quarter: 2009Q2

REPORT INFORMATION
  Report Type: 
  Country: None (occurrence: None)
  Receive Date: 20090421
  Receipt Date: 20090413
  Transmission Date: 20091009
  Serious: Yes (Hospitalization)
  Sender: FDA-Public Use
  Company Number: US-GENENTECH-281026

PATIENT
  Sex: Male

DRUGS (6)
  1. BEVACIZUMAB [Suspect]
     Indication: OESOPHAGEAL CARCINOMA
     Dosage: 15 MG/KG, DAYS 1+22
     Dates: start: 20080630
  2. ERLOTINIB [Suspect]
     Indication: OESOPHAGEAL CARCINOMA
     Dosage: 100 MG, QD
     Route: 048
     Dates: start: 20080630
  3. PARAPLATIN [Suspect]
     Indication: OESOPHAGEAL CARCINOMA
     Dosage: 5 AUC, DAYS 1+22
     Dates: start: 20080630
  4. TAXOL [Suspect]
     Indication: OESOPHAGEAL CARCINOMA
     Dosage: 200 MG/M2, DAYS 1+22
     Dates: start: 20080630
  5. FLUOROURACIL [Suspect]
     Indication: OESOPHAGEAL CARCINOMA
     Dosage: 225 MG/M2, CONTINUOUS
     Dates: start: 20080630
  6. RADIATION [Suspect]
     Indication: OESOPHAGEAL CARCINOMA
     Dosage: 20 GY, QD
     Dates: start: 20080630

REACTIONS (3)
  - DEHYDRATION [None]
  - DYSPHAGIA [None]
  - OESOPHAGITIS [None]
